FAERS Safety Report 9367633 (Version 1)
Quarter: 2013Q2

REPORT INFORMATION
  Report Type: Spontaneous
  Country: CN (occurrence: CN)
  Receive Date: 20130625
  Receipt Date: 20130625
  Transmission Date: 20140414
  Serious: Yes (Other)
  Sender: FDA-Public Use
  Company Number: CN-BAXTER-2013BAX023912

PATIENT
  Age: 5 Year
  Sex: Male
  Weight: 13 kg

DRUGS (3)
  1. MEDIUM AND LONG CHAIN FAT EMULSION INJECTION (C8-24) 20% [Suspect]
     Indication: NUTRITIONAL SUPPLEMENTATION
     Dosage: 60
     Route: 041
     Dates: start: 20120615, end: 20120615
  2. AMINO ACIDS [Suspect]
     Indication: NUTRITIONAL SUPPLEMENTATION
     Route: 041
     Dates: start: 20120615
  3. 5% GLUCOSE INJECTION [Suspect]
     Indication: NUTRITIONAL SUPPLEMENTATION
     Route: 041
     Dates: start: 20120615, end: 20120615

REACTIONS (1)
  - Hypersensitivity [Recovered/Resolved]
